FAERS Safety Report 8850544 (Version 1)
Quarter: 2012Q4

REPORT INFORMATION
  Report Type: 
  Country: US (occurrence: US)
  Receive Date: 20121019
  Receipt Date: 20121019
  Transmission Date: 20130627
  Serious: Yes (Other)
  Sender: FDA-Public Use
  Company Number: CHPA2012US021433

PATIENT
  Age: 15 Year
  Sex: Male

DRUGS (1)
  1. GAS-X [Suspect]
     Dosage: 1 tablet, Unk
     Route: 048

REACTIONS (3)
  - Coeliac disease [Not Recovered/Not Resolved]
  - Diabetes mellitus [Not Recovered/Not Resolved]
  - Abdominal pain upper [Unknown]
